FAERS Safety Report 5952156-7 (Version None)
Quarter: 2008Q4

REPORT INFORMATION
  Report Type: 
  Country: None (occurrence: None)
  Receive Date: 20081113
  Receipt Date: 20080718
  Transmission Date: 20090506
  Serious: No
  Sender: FDA-Public Use
  Company Number: A0738457A

PATIENT
  Age: 63 Year
  Sex: Female

DRUGS (4)
  1. CARVEDILOL [Suspect]
     Dosage: 25MG TWICE PER DAY
     Route: 048
     Dates: start: 20080101, end: 20080101
  2. ATACAND [Concomitant]
  3. ALDACTONE [Concomitant]
  4. TRIAMTERENE [Concomitant]

REACTIONS (1)
  - PRURITUS [None]
